FAERS Safety Report 23873929 (Version 1)
Quarter: 2024Q2

REPORT INFORMATION
  Report Type: Spontaneous
  Country: US (occurrence: None)
  Receive Date: 20240517
  Receipt Date: 20240517
  Transmission Date: 20240716
  Serious: No
  Sender: FDA-Public Use
  Company Number: None

PATIENT
  Age: 56 Year
  Sex: Male

DRUGS (1)
  1. TASIGNA [Suspect]
     Active Substance: NILOTINIB
     Indication: Myeloproliferative neoplasm
     Dosage: 400 MG DAILY ORAL ?
     Route: 048

REACTIONS (2)
  - Pneumonia [None]
  - Therapy interrupted [None]
